FAERS Safety Report 6371944-9 (Version None)
Quarter: 2009Q3

REPORT INFORMATION
  Report Type: 
  Country: None (occurrence: None)
  Receive Date: 20090923
  Receipt Date: 20090911
  Transmission Date: 20100115
  Serious: Yes (Other)
  Sender: FDA-Public Use
  Company Number: US-ELI_LILLY_AND_COMPANY-US200909003250

PATIENT
  Sex: Female

DRUGS (3)
  1. ZYPREXA [Suspect]
     Indication: BIPOLAR DISORDER
     Dosage: 20 MG, DAILY (1/D)
     Dates: start: 20090801, end: 20090910
  2. ZYPREXA [Suspect]
     Indication: BIPOLAR DISORDER
     Dosage: 1 D/F, UNK
  3. ALPRAZOLAM [Concomitant]
     Indication: POST-TRAUMATIC STRESS DISORDER

REACTIONS (11)
  - BLOOD TRIGLYCERIDES INCREASED [None]
  - CONTUSION [None]
  - HYPERSENSITIVITY [None]
  - INJECTION SITE VESICLES [None]
  - NIGHT SWEATS [None]
  - OEDEMA PERIPHERAL [None]
  - PAIN IN EXTREMITY [None]
  - PALLOR [None]
  - RASH [None]
  - RENAL DISORDER [None]
  - VISION BLURRED [None]
